FAERS Safety Report 13085319 (Version 1)
Quarter: 2017Q1

REPORT INFORMATION
  Report Type: Spontaneous
  Country: FR (occurrence: FR)
  Receive Date: 20170104
  Receipt Date: 20170104
  Transmission Date: 20170428
  Serious: Yes (Hospitalization, Other)
  Sender: FDA-Public Use
  Company Number: FR-PFIZER INC-2016605148

PATIENT
  Age: 68 Year
  Sex: Male

DRUGS (12)
  1. TAVANIC [Concomitant]
     Active Substance: LEVOFLOXACIN
     Indication: ENDOCARDITIS
     Dosage: 500 MG, 3X/DAY
     Dates: start: 20161106
  2. TAZOCILLINE [Suspect]
     Active Substance: PIPERACILLIN SODIUM\TAZOBACTAM SODIUM
     Indication: INFECTION
     Dosage: 4 G, 3X/DAY
     Dates: start: 20161211, end: 20161212
  3. AMOXICILLIN. [Concomitant]
     Active Substance: AMOXICILLIN
     Indication: ENDOCARDITIS
     Dosage: UNK
     Dates: start: 20161201
  4. INEXIUM /01479302/ [Concomitant]
     Active Substance: ESOMEPRAZOLE MAGNESIUM
     Dosage: 40 MG, 1X/DAY
  5. NOREPINEPHRINE [Concomitant]
     Active Substance: NOREPINEPHRINE\NOREPINEPHRINE BITARTRATE
     Dosage: UNK
     Dates: start: 20161212
  6. CALCIPARINE [Concomitant]
     Active Substance: HEPARIN CALCIUM
     Dosage: UNK
     Dates: start: 20161212
  7. CRESTOR [Concomitant]
     Active Substance: ROSUVASTATIN CALCIUM
     Dosage: 10 MG, DAILY
  8. AVLOCARDYL /00030002/ [Concomitant]
     Dosage: 40 MG, 2X/DAY
  9. CUBICIN [Concomitant]
     Active Substance: DAPTOMYCIN
     Indication: ENDOCARDITIS
     Dosage: 1 G, DAILY
     Dates: start: 20161019
  10. RIFAMPICIN [Suspect]
     Active Substance: RIFAMPIN
     Indication: ENDOCARDITIS
     Dosage: UNK
     Dates: start: 20161103, end: 20161214
  11. DANATROL [Concomitant]
     Active Substance: DANAZOL
     Dosage: 1 DF, 3X/DAY
  12. TARDYFERON [Concomitant]
     Active Substance: FERROUS SULFATE
     Dosage: 80 MG, 3X/DAY

REACTIONS (3)
  - Renal injury [Unknown]
  - Hepatic failure [Recovering/Resolving]
  - Hepatocellular injury [Recovering/Resolving]

NARRATIVE: CASE EVENT DATE: 2016
